FAERS Safety Report 10655334 (Version 2)
Quarter: 2014Q4

REPORT INFORMATION
  Report Type: Spontaneous
  Country: US (occurrence: US)
  Receive Date: 20141216
  Receipt Date: 20141223
  Transmission Date: 20150529
  Serious: Yes (Other)
  Sender: FDA-Public Use
  Company Number: US-TEVA-528843USA

PATIENT
  Age: 18 Year
  Sex: Female

DRUGS (1)
  1. NORTRIPTYLINE [Suspect]
     Active Substance: NORTRIPTYLINE
     Dosage: 50 MILLIGRAM DAILY; 2 (50 MG) ONCE DAILY IN PM

REACTIONS (5)
  - Gastrointestinal hypomotility [Not Recovered/Not Resolved]
  - Impaired gastric emptying [Not Recovered/Not Resolved]
  - Nerve injury [Not Recovered/Not Resolved]
  - Viral infection [Unknown]
  - Product quality issue [Unknown]
